FAERS Safety Report 7912932-8 (Version None)
Quarter: 2011Q4

REPORT INFORMATION
  Report Type: 
  Country: None (occurrence: None)
  Receive Date: 20111114
  Receipt Date: 20111103
  Transmission Date: 20120403
  Serious: Yes (Hospitalization)
  Sender: FDA-Public Use
  Company Number: FR-PERRIGO-11FR009525

PATIENT
  Sex: Female
  Weight: 1.7 kg

DRUGS (4)
  1. ACETYLCYSTEINE [Concomitant]
  2. ACETAMINOPHEN [Suspect]
     Dosage: MOTHER INGESTED 24 GRAMS
  3. CLOBAZAM [Concomitant]
  4. LUNG MATURATION TREATMENT [Concomitant]

REACTIONS (3)
  - PREMATURE BABY [None]
  - NEONATAL RESPIRATORY DISTRESS SYNDROME [None]
  - JAUNDICE NEONATAL [None]
